FAERS Safety Report 19272376 (Version 4)
Quarter: 2021Q3

REPORT INFORMATION
  Report Type: Report from Study
  Country: US (occurrence: US)
  Receive Date: 20210519
  Receipt Date: 20210707
  Transmission Date: 20211014
  Serious: Yes (Death, Hospitalization)
  Sender: FDA-Public Use
  Company Number: US-JNJFOC-20210522624

PATIENT
  Age: 59 Year
  Sex: Female
  Weight: 70.9 kg

DRUGS (2)
  1. MACITENTAN [Suspect]
     Active Substance: MACITENTAN
     Indication: PULMONARY HYPERTENSION
     Route: 048
  2. TYVASO [Concomitant]
     Active Substance: TREPROSTINIL

REACTIONS (4)
  - Shunt occlusion [Unknown]
  - Liver disorder [Unknown]
  - Pulmonary hypertension [Fatal]
  - Fluid overload [Unknown]

NARRATIVE: CASE EVENT DATE: 20210508
